FAERS Safety Report 12895271 (Version 1)
Quarter: 2016Q4

REPORT INFORMATION
  Report Type: Spontaneous
  Country: AU (occurrence: AU)
  Receive Date: 20161030
  Receipt Date: 20161030
  Transmission Date: 20170207
  Serious: Yes (Other)
  Sender: FDA-Public Use
  Company Number: AU-BAXTER-2016BAX054156

PATIENT
  Sex: Female

DRUGS (9)
  1. BAXTER 0.9% SODIUM CHLORIDE 9G_L INJECTION BP BAG AHB1324 [Suspect]
     Active Substance: SODIUM CHLORIDE
     Route: 065
     Dates: start: 2016, end: 2016
  2. [PSS GPN] ETOPOSIDE [Suspect]
     Active Substance: ETOPOSIDE
     Route: 042
     Dates: start: 2016
  3. STERILE WATER [Suspect]
     Active Substance: WATER
     Route: 042
     Dates: start: 2016
  4. STERILE WATER [Suspect]
     Active Substance: WATER
     Route: 042
     Dates: start: 2016, end: 2016
  5. BAXTER 0.9% SODIUM CHLORIDE 9G_L INJECTION BP BAG AHB1324 [Suspect]
     Active Substance: SODIUM CHLORIDE
     Indication: MEDICATION DILUTION
     Route: 042
     Dates: start: 2016, end: 2016
  6. STERILE WATER [Suspect]
     Active Substance: WATER
     Indication: MEDICATION DILUTION
     Route: 042
     Dates: start: 2016, end: 2016
  7. [PSS GPN] ETOPOSIDE [Suspect]
     Active Substance: ETOPOSIDE
     Route: 042
     Dates: start: 2016, end: 2016
  8. BAXTER 0.9% SODIUM CHLORIDE 9G_L INJECTION BP BAG AHB1324 [Suspect]
     Active Substance: SODIUM CHLORIDE
     Route: 065
     Dates: start: 2016
  9. [PSS GPN] ETOPOSIDE [Suspect]
     Active Substance: ETOPOSIDE
     Indication: PRODUCT USED FOR UNKNOWN INDICATION
     Route: 042
     Dates: start: 2016, end: 2016

REACTIONS (3)
  - Product preparation error [Recovered/Resolved]
  - Neutropenia [Unknown]
  - Overdose [Recovered/Resolved]

NARRATIVE: CASE EVENT DATE: 20160630
